FAERS Safety Report 9560795 (Version 1)
Quarter: 2013Q3

REPORT INFORMATION
  Report Type: Spontaneous
  Country: US (occurrence: US)
  Receive Date: 20130927
  Receipt Date: 20130927
  Transmission Date: 20140515
  Serious: No
  Sender: FDA-Public Use
  Company Number: US-BIOGENIDEC-2013BI054123

PATIENT
  Age: 59 Year
  Sex: Female

DRUGS (8)
  1. TECFIDERA [Suspect]
     Indication: MULTIPLE SCLEROSIS
     Route: 048
     Dates: start: 20130517
  2. TECFIDERA [Suspect]
     Indication: MULTIPLE SCLEROSIS
     Route: 048
     Dates: start: 20130524
  3. PRAVASTATIN [Concomitant]
  4. VALACYCLOYIR [Concomitant]
  5. HYDROXYCHLOROQUINK [Concomitant]
  6. TAMSULOSIN [Concomitant]
  7. PENTASA [Concomitant]
  8. CELEBREX [Concomitant]

REACTIONS (1)
  - Abdominal pain upper [Recovered/Resolved]
